FAERS Safety Report 18118310 (Version 1)
Quarter: 2020Q3

REPORT INFORMATION
  Report Type: Spontaneous
  Country: US (occurrence: US)
  Receive Date: 20200806
  Receipt Date: 20200806
  Transmission Date: 20201103
  Serious: Yes (Life-Threatening)
  Sender: FDA-Public Use
  Company Number: None

PATIENT
  Age: 42 Year
  Sex: Male
  Weight: 97 kg

DRUGS (9)
  1. LIDOCAINE. [Concomitant]
     Active Substance: LIDOCAINE
     Dates: start: 20200701, end: 20200701
  2. CHLORHEXIDINE [Concomitant]
     Active Substance: CHLORHEXIDINE
     Dates: start: 20200701, end: 20200701
  3. MIDAZOLAM. [Concomitant]
     Active Substance: MIDAZOLAM
     Dates: start: 20200701, end: 20200701
  4. ROCURONIUM [Concomitant]
     Active Substance: ROCURONIUM BROMIDE
     Dates: start: 20200701, end: 20200701
  5. FENTANYL. [Concomitant]
     Active Substance: FENTANYL
     Dates: start: 20200701, end: 20200701
  6. PROTAMINE SULFATE. [Suspect]
     Active Substance: PROTAMINE SULFATE
     Indication: CARDIAC OPERATION
     Dosage: ?          OTHER FREQUENCY:ONCE;?
     Route: 042
     Dates: start: 20200701, end: 20200701
  7. PHENYLEPHRINE [Concomitant]
     Active Substance: PHENYLEPHRINE HYDROCHLORIDE
     Dates: start: 20200701, end: 20200701
  8. PROPOFOL. [Concomitant]
     Active Substance: PROPOFOL
     Dates: start: 20200701, end: 20200701
  9. PROPOFOL. [Concomitant]
     Active Substance: PROPOFOL
     Dates: start: 20200701, end: 20200701

REACTIONS (8)
  - Hypotension [None]
  - Tachycardia [None]
  - Dilatation ventricular [None]
  - Electrocardiogram ST segment elevation [None]
  - Cardiogenic shock [None]
  - Haemodynamic instability [None]
  - Cardiac failure congestive [None]
  - Right ventricular dilatation [None]

NARRATIVE: CASE EVENT DATE: 20200701
